FAERS Safety Report 10039913 (Version 1)
Quarter: 2014Q1

REPORT INFORMATION
  Report Type: Spontaneous
  Country: JP (occurrence: JP)
  Receive Date: 20140326
  Receipt Date: 20140326
  Transmission Date: 20141002
  Serious: Yes (Hospitalization)
  Sender: FDA-Public Use
  Company Number: JP-PFIZER INC-2014083771

PATIENT
  Sex: Female

DRUGS (3)
  1. GENOTROPIN TC [Suspect]
     Indication: GROWTH HORMONE DEFICIENCY
     Dosage: 1.2 MG, WEEKLY
     Route: 058
     Dates: start: 20070426, end: 20070620
  2. GENOTROPIN TC [Suspect]
     Dosage: 2.4 MG, WEEKLY
     Route: 058
     Dates: start: 20070621, end: 20080116
  3. GENOTROPIN TC [Suspect]
     Dosage: 2.4 MG, WEEKLY
     Route: 058
     Dates: start: 20080117

REACTIONS (1)
  - Bronchitis [Recovered/Resolved]
